FAERS Safety Report 7071066-8 (Version None)
Quarter: 2010Q4

REPORT INFORMATION
  Report Type: 
  Country: None (occurrence: None)
  Receive Date: 20101029
  Receipt Date: 20101025
  Transmission Date: 20110411
  Serious: No
  Sender: FDA-Public Use
  Company Number: US-PFIZER INC-2010115791

PATIENT
  Sex: Male

DRUGS (1)
  1. XALATAN [Suspect]
     Indication: PIGMENTARY GLAUCOMA
     Dosage: UNK
     Route: 047

REACTIONS (2)
  - INCORRECT DOSE ADMINISTERED [None]
  - PRODUCT QUALITY ISSUE [None]
